FAERS Safety Report 10079032 (Version 1)
Quarter: 2014Q2

REPORT INFORMATION
  Report Type: Spontaneous
  Country: GB (occurrence: GB)
  Receive Date: 20140415
  Receipt Date: 20140415
  Transmission Date: 20141212
  Serious: Yes (Disabling)
  Sender: FDA-Public Use
  Company Number: GB-UCBSA-117613

PATIENT
  Age: 29 Year
  Sex: Male
  Weight: 75 kg

DRUGS (7)
  1. VIMPAT [Suspect]
     Route: 048
     Dates: start: 20140214, end: 2014
  2. VIMPAT [Suspect]
     Route: 048
     Dates: start: 2014, end: 2014
  3. VIMPAT [Suspect]
     Route: 048
     Dates: start: 2014
  4. CITALOPRAM [Concomitant]
     Indication: DEPRESSION
     Route: 048
     Dates: start: 200802
  5. DIHYDROCODEINE [Concomitant]
     Indication: PAIN
     Route: 048
     Dates: start: 200106
  6. EPILIM CHRONO [Concomitant]
     Indication: EPILEPSY
     Route: 048
     Dates: start: 201107
  7. NITRAZEPAM [Concomitant]
     Indication: INSOMNIA
     Route: 048
     Dates: start: 201203

REACTIONS (1)
  - Hypersomnia [Recovering/Resolving]
